FAERS Safety Report 8234757-9 (Version None)
Quarter: 2012Q1

REPORT INFORMATION
  Report Type: 
  Country: None (occurrence: None)
  Receive Date: 20120326
  Receipt Date: 20120318
  Transmission Date: 20120608
  Serious: Yes (Other)
  Sender: FDA-Public Use
  Company Number: US-BAYER-2012-027159

PATIENT
  Age: 71 Year
  Weight: 91 kg

DRUGS (3)
  1. LOSARTAN POTASSIUM [Concomitant]
  2. SYNTHROID [Concomitant]
  3. ALEVE (CAPLET) [Suspect]
     Indication: ANALGESIC THERAPY
     Dosage: 2 DF, ONCE
     Route: 048
     Dates: start: 20120310, end: 20120310

REACTIONS (1)
  - MYOCARDIAL INFARCTION [None]
